FAERS Safety Report 8450015-1 (Version None)
Quarter: 2012Q2

REPORT INFORMATION
  Report Type: 
  Country: None (occurrence: None)
  Receive Date: 20120620
  Receipt Date: 20120619
  Transmission Date: 20120825
  Serious: Yes (Life-Threatening)
  Sender: FDA-Public Use
  Company Number: PHHY2012JP028296

PATIENT
  Sex: Male
  Weight: 65 kg

DRUGS (15)
  1. BLONANSERIN [Concomitant]
     Dosage: 24 MG, UNK
     Route: 048
     Dates: start: 20120301, end: 20120322
  2. CLOZARIL [Suspect]
     Dosage: 100 MG, UNK
     Route: 048
     Dates: start: 20120311, end: 20120312
  3. CLOZARIL [Suspect]
     Dosage: 175 MG, UNK
     Route: 048
     Dates: start: 20120319, end: 20120321
  4. CLOZARIL [Suspect]
     Dosage: 125 MG, UNK
     Route: 048
     Dates: start: 20120313, end: 20120315
  5. HIRNAMIN [Concomitant]
     Dosage: 200 MG, UNK
     Route: 048
     Dates: start: 20120309, end: 20120322
  6. CLOZARIL [Suspect]
     Dosage: 200 MG, UNK
     Route: 048
     Dates: start: 20120322, end: 20120322
  7. CLOZARIL [Suspect]
     Dosage: 25 MG, UNK
     Route: 048
     Dates: start: 20120303, end: 20120305
  8. CLOZARIL [Suspect]
     Dosage: 50 MG, UNK
     Route: 048
     Dates: start: 20120306, end: 20120308
  9. CLOZARIL [Suspect]
     Dosage: 75 MG, UNK
     Route: 048
     Dates: start: 20120309, end: 20120310
  10. CLOZARIL [Suspect]
     Dosage: 150 MG, UNK
     Route: 048
     Dates: start: 20120316, end: 20120318
  11. LITHIUM CARBONATE [Concomitant]
     Indication: SCHIZOPHRENIA, PARANOID TYPE
     Dosage: 800 MG, UNK
     Route: 048
  12. TOPIRAMATE [Concomitant]
     Indication: SCHIZOPHRENIA, PARANOID TYPE
     Dosage: 300 MG, UNK
     Route: 048
  13. PURSENNID [Concomitant]
     Indication: CONSTIPATION
     Dosage: 24 MG, UNK
     Route: 048
     Dates: start: 20111019
  14. PROMETHAZINE HCL [Concomitant]
     Indication: SCHIZOPHRENIA, PARANOID TYPE
     Dosage: 50 MG, UNK
     Route: 048
     Dates: start: 20111019
  15. CLOZARIL [Suspect]
     Indication: SCHIZOPHRENIA, PARANOID TYPE
     Dosage: 12.5 MG, UNK
     Route: 048
     Dates: start: 20120302, end: 20120302

REACTIONS (5)
  - DEHYDRATION [None]
  - EOSINOPHIL COUNT INCREASED [None]
  - TUBULOINTERSTITIAL NEPHRITIS [None]
  - WHITE BLOOD CELL COUNT INCREASED [None]
  - DIARRHOEA [None]
